FAERS Safety Report 9055171 (Version 1)
Quarter: 2013Q1

REPORT INFORMATION
  Report Type: Spontaneous
  Country: FR (occurrence: FR)
  Receive Date: 20130206
  Receipt Date: 20130206
  Transmission Date: 20140127
  Serious: Yes (Hospitalization)
  Sender: FDA-Public Use
  Company Number: FR-BRISTOL-MYERS SQUIBB COMPANY-17330895

PATIENT
  Age: 48 Year
  Sex: Female

DRUGS (6)
  1. SPRYCEL (CML) TABS 50 MG [Suspect]
     Indication: CHRONIC MYELOID LEUKAEMIA
     Route: 048
     Dates: start: 20070201
  2. ALDACTAZINE [Suspect]
     Route: 048
     Dates: start: 2004
  3. PROZAC [Suspect]
     Dosage: 20MG CAPS
     Route: 048
     Dates: start: 2004
  4. HEPATITIS B VACCINE RECOMBINANT [Suspect]
     Dosage: 1DF=20MCG/ML.?1ST DOSE-JAN12,3RD:END OF JUL12
     Route: 030
     Dates: start: 201201
  5. APROVEL [Concomitant]
     Dates: start: 20121114
  6. DIFFU-K [Concomitant]
     Dates: start: 201206

REACTIONS (2)
  - Systemic lupus erythematosus [Not Recovered/Not Resolved]
  - Glomerulonephritis membranoproliferative [Not Recovered/Not Resolved]
